FAERS Safety Report 7730441-6 (Version None)
Quarter: 2011Q3

REPORT INFORMATION
  Report Type: 
  Country: None (occurrence: None)
  Receive Date: 20110906
  Receipt Date: 20110826
  Transmission Date: 20111222
  Serious: Yes (Other)
  Sender: FDA-Public Use
  Company Number: PHEH2011US02742

PATIENT
  Sex: Female

DRUGS (14)
  1. MULTI-VITAMINS [Concomitant]
     Dosage: UNK UKN, UNK
  2. RECLAST [Suspect]
     Dosage: 5 MG, 1X YEARLY
     Route: 042
     Dates: start: 20100701
  3. COQ10 [Concomitant]
     Dosage: UNK UKN, UNK
  4. FLAX SEED OIL [Concomitant]
     Dosage: UNK UKN, UNK
  5. ASCORBIC ACID [Concomitant]
     Dosage: UNK UKN, UNK
  6. RECLAST [Suspect]
     Indication: OSTEOPOROSIS
     Dosage: 5 MG, 1X YEARLY
     Route: 042
     Dates: start: 20090101
  7. RECLAST [Suspect]
     Dosage: 5 MG,1X YEARLY
     Route: 042
     Dates: start: 20110522
  8. AMLODIPINE [Concomitant]
     Indication: BLOOD PRESSURE
     Dosage: UNK UKN, UNK
  9. FIBER [Concomitant]
     Dosage: UNK UKN, UNK
  10. MAGNESIUM [Concomitant]
     Indication: OSTEOPOROSIS
     Dosage: UNK UKN, UNK
  11. CALCIUM CARBONATE [Concomitant]
     Dosage: 600MG PLUS D 400 IU
  12. TRIPLE FLEX [Concomitant]
     Dosage: UNK UKN, UNK
  13. PREVACID [Concomitant]
     Dosage: UNK UKN, UNK
  14. SIMVASTATIN [Concomitant]
     Indication: BLOOD CHOLESTEROL
     Dosage: 20 MG

REACTIONS (14)
  - URTICARIA [None]
  - CONTUSION [None]
  - GAIT DISTURBANCE [None]
  - BONE DENSITY DECREASED [None]
  - GINGIVAL HYPERTROPHY [None]
  - OSTEOPENIA [None]
  - PRURITUS [None]
  - VEIN DISORDER [None]
  - PAIN [None]
  - VITAMIN D DECREASED [None]
  - LOOSE TOOTH [None]
  - BODY HEIGHT DECREASED [None]
  - FALL [None]
  - BONE LOSS [None]
